FAERS Safety Report 9478634 (Version 5)
Quarter: 2015Q2

REPORT INFORMATION
  Report Type: Spontaneous
  Country: US (occurrence: US)
  Receive Date: 20130827
  Receipt Date: 20150610
  Transmission Date: 20150821
  Serious: Yes (Hospitalization)
  Sender: FDA-Public Use
  Company Number: US-BAYER-2013-103026

PATIENT
  Age: 41 Year
  Sex: Female
  Weight: 85.71 kg

DRUGS (2)
  1. MIRENA [Suspect]
     Active Substance: LEVONORGESTREL
     Indication: CONTRACEPTION
     Dosage: 20 MCG/24HR, CONT
     Route: 015
     Dates: start: 20080623, end: 20120227
  2. LUPRON [Concomitant]
     Active Substance: LEUPROLIDE ACETATE

REACTIONS (10)
  - Weight increased [None]
  - Pelvic discomfort [None]
  - Gastrointestinal disorder [None]
  - Pelvic pain [None]
  - Self esteem decreased [None]
  - Emotional distress [None]
  - Embedded device [None]
  - Injury [None]
  - Fatigue [None]
  - Depressed mood [None]

NARRATIVE: CASE EVENT DATE: 200810
